FAERS Safety Report 6957643-0 (Version None)
Quarter: 2010Q3

REPORT INFORMATION
  Report Type: 
  Country: None (occurrence: None)
  Receive Date: 20100831
  Receipt Date: 20100818
  Transmission Date: 20110219
  Serious: Yes (Other)
  Sender: FDA-Public Use
  Company Number: US-ELI_LILLY_AND_COMPANY-US201008005849

PATIENT
  Sex: Female

DRUGS (9)
  1. CYMBALTA [Suspect]
     Indication: NERVOUSNESS
     Dosage: 30 MG, DAILY (1/D)
  2. CYMBALTA [Suspect]
     Dosage: 60 MG, DAILY (1/D)
  3. PAXIL [Concomitant]
  4. FLEXERIL [Concomitant]
     Dosage: UNK, AS NEEDED
     Dates: start: 19870101
  5. LORTAB [Concomitant]
     Indication: PAIN
     Dosage: UNK, AS NEEDED
  6. NEXIUM [Concomitant]
     Indication: REFLUX OESOPHAGITIS
  7. VITAMIN B-12 [Concomitant]
     Indication: PERNICIOUS ANAEMIA
     Dosage: UNK, MONTHLY (1/M)
  8. XANAX [Concomitant]
     Indication: PANIC ATTACK
     Dosage: UNK, AS NEEDED
  9. FLONASE [Concomitant]
     Dosage: UNK, AS NEEDED

REACTIONS (15)
  - ASTHMA [None]
  - BRONCHITIS CHRONIC [None]
  - BURNING SENSATION [None]
  - DERMATITIS BULLOUS [None]
  - DISTURBANCE IN ATTENTION [None]
  - DIZZINESS [None]
  - HERPES ZOSTER [None]
  - INSOMNIA [None]
  - KNEE OPERATION [None]
  - MENTAL DISORDER [None]
  - PRODUCT QUALITY ISSUE [None]
  - PRURITUS [None]
  - SKIN EXFOLIATION [None]
  - VISION BLURRED [None]
  - VOMITING [None]
